FAERS Safety Report 6586886-3 (Version None)
Quarter: 2010Q1

REPORT INFORMATION
  Report Type: 
  Country: None (occurrence: None)
  Receive Date: 20100217
  Receipt Date: 20090730
  Transmission Date: 20100710
  Serious: No
  Sender: FDA-Public Use
  Company Number: US-ALLERGAN-0910706US

PATIENT
  Age: 39 Year
  Sex: Female

DRUGS (2)
  1. BOTOX [Suspect]
     Indication: MIGRAINE
     Dosage: UNK, SINGLE
     Route: 030
     Dates: start: 20090714, end: 20090714
  2. BOTOX [Suspect]
     Indication: BLEPHAROSPASM

REACTIONS (1)
  - SKIN HYPERPIGMENTATION [None]
